FAERS Safety Report 9010181 (Version 1)
Quarter: 2013Q1

REPORT INFORMATION
  Report Type: Spontaneous
  Country: US (occurrence: US)
  Receive Date: 20130110
  Receipt Date: 20130110
  Transmission Date: 20140127
  Serious: Yes (Hospitalization)
  Sender: FDA-Public Use
  Company Number: PHHY2013US001461

PATIENT
  Age: 59 Year
  Sex: Male

DRUGS (4)
  1. MYCOPHENOLIC ACID [Suspect]
     Indication: RENAL TRANSPLANT
     Dosage: 360 MG, UNK
  2. CICLOSPORIN [Concomitant]
     Dosage: 75 MG, BID
     Route: 048
  3. PREDNISONE [Concomitant]
     Dosage: 5 MG, QD
     Route: 048
  4. VITAMIN C [Concomitant]
     Dosage: 500 MG EVERY DAY

REACTIONS (10)
  - Chronic allograft nephropathy [Unknown]
  - Oxalosis [Unknown]
  - Inflammation [Unknown]
  - Protein urine [Unknown]
  - Blood urine present [Unknown]
  - Renal failure acute [Unknown]
  - Weight decreased [Unknown]
  - Renal impairment [Unknown]
  - Diarrhoea [Unknown]
  - Bacterial test [Unknown]
